FAERS Safety Report 20816601 (Version 1)
Quarter: 2022Q2

REPORT INFORMATION
  Report Type: Spontaneous
  Country: CA (occurrence: CA)
  Receive Date: 20220512
  Receipt Date: 20220512
  Transmission Date: 20220721
  Serious: Yes (Other)
  Sender: FDA-Public Use
  Company Number: CA-SAMSUNG BIOEPIS-SB-2022-10980

PATIENT
  Age: 33 Year
  Sex: Female

DRUGS (1)
  1. INFLIXIMAB [Suspect]
     Active Substance: INFLIXIMAB
     Indication: Juvenile idiopathic arthritis
     Route: 042

REACTIONS (5)
  - Hypotension [Unknown]
  - Osteoarthritis [Unknown]
  - Intentional product use issue [Unknown]
  - Off label use [Unknown]
  - Product use in unapproved indication [Unknown]
